FAERS Safety Report 5341191-8 (Version None)
Quarter: 2007Q2

REPORT INFORMATION
  Report Type: 
  Country: None (occurrence: None)
  Receive Date: 20070405
  Receipt Date: 20061120
  Transmission Date: 20071010
  Serious: No
  Sender: FDA-Public Use
  Company Number: US200611004660

PATIENT
  Age: 45 Year
  Sex: Male

DRUGS (4)
  1. CYMBALTA [Suspect]
     Indication: AFFECTIVE DISORDER
     Dosage: SEE IMAGE
  2. HMG COA REDUCTASE INHIBITORS [Concomitant]
  3. VITAMINS NOS (VITAMINS NOS) [Concomitant]
  4. ASPIRIN [Concomitant]

REACTIONS (1)
  - HYPOTENSION [None]
